FAERS Safety Report 4420268-5 (Version None)
Quarter: 2004Q3

REPORT INFORMATION
  Report Type: 
  Country: None (occurrence: None)
  Receive Date: 20040809
  Receipt Date: 20040326
  Transmission Date: 20050211
  Serious: No
  Sender: FDA-Public Use
  Company Number: US-GLAXOSMITHKLINE-A0504842A

PATIENT
  Sex: Female

DRUGS (3)
  1. PAXIL [Suspect]
     Indication: DRUG USE FOR UNKNOWN INDICATION
     Route: 048
  2. ESTROGEN [Concomitant]
     Indication: DRUG USE FOR UNKNOWN INDICATION
     Dosage: .1MG PER DAY
     Route: 062
  3. HEARTBURN MEDICATION [Concomitant]

REACTIONS (3)
  - AGITATION [None]
  - INSOMNIA [None]
  - MUSCULAR WEAKNESS [None]
